FAERS Safety Report 12436828 (Version 1)
Quarter: 2016Q2

REPORT INFORMATION
  Report Type: Spontaneous
  Country: FR (occurrence: FR)
  Receive Date: 20160606
  Receipt Date: 20160606
  Transmission Date: 20160815
  Serious: Yes (Disabling)
  Sender: FDA-Public Use
  Company Number: FR-ABBVIE-16K-056-1640307-00

PATIENT
  Sex: Female

DRUGS (2)
  1. HUMIRA [Suspect]
     Active Substance: ADALIMUMAB
     Indication: CROHN^S DISEASE
     Route: 058
     Dates: start: 201209, end: 201301
  2. HUMIRA [Suspect]
     Active Substance: ADALIMUMAB
     Route: 058
     Dates: start: 201407, end: 20151215

REACTIONS (12)
  - Cutaneous lupus erythematosus [Recovered/Resolved]
  - Musculoskeletal stiffness [Unknown]
  - Joint swelling [Recovered/Resolved]
  - Rash papular [Recovered/Resolved]
  - Skin discolouration [Recovered/Resolved]
  - Exposure during pregnancy [Unknown]
  - Arthralgia [Unknown]
  - Skin lesion [Unknown]
  - Musculoskeletal stiffness [Recovered/Resolved]
  - Arthralgia [Recovered/Resolved]
  - Skin plaque [Recovered/Resolved]
  - Lupus-like syndrome [Recovering/Resolving]

NARRATIVE: CASE EVENT DATE: 2015
